FAERS Safety Report 4448765-7 (Version None)
Quarter: 2004Q3

REPORT INFORMATION
  Report Type: 
  Country: None (occurrence: None)
  Receive Date: 20040909
  Receipt Date: 20040826
  Transmission Date: 20050211
  Serious: Yes (Hospitalization, Other)
  Sender: FDA-Public Use
  Company Number: 2003EU006599

PATIENT
  Age: 33 Year
  Sex: Male

DRUGS (6)
  1. PROGRAF [Suspect]
     Indication: TRANSPLANT
     Dosage: 0.2 MG/KG
  2. THYMOGLOBULIN [Concomitant]
  3. PREDNISONE [Concomitant]
  4. CELLCEPT [Concomitant]
  5. SIMULECT [Concomitant]
  6. ANTIBIOTICS [Concomitant]

REACTIONS (10)
  - CONFUSIONAL STATE [None]
  - DIARRHOEA [None]
  - DRUG INEFFECTIVE [None]
  - HALLUCINATION, VISUAL [None]
  - HEADACHE [None]
  - HYPERGLYCAEMIA [None]
  - POST PROCEDURAL COMPLICATION [None]
  - SERUM SICKNESS [None]
  - TRANSPLANT REJECTION [None]
  - VOMITING [None]
